FAERS Safety Report 8818087 (Version 2)
Quarter: 2012Q4

REPORT INFORMATION
  Report Type: 
  Country: US (occurrence: US)
  Receive Date: 20121001
  Receipt Date: 20121102
  Transmission Date: 20130627
  Serious: Yes (Other)
  Sender: FDA-Public Use
  Company Number: US-CELGENEUS-163-21880-12083052

PATIENT
  Age: 72 None
  Sex: Female

DRUGS (21)
  1. REVLIMID [Suspect]
     Indication: MULTIPLE MYELOMA
     Dosage: 10 Milligram
     Route: 048
     Dates: start: 20110207, end: 2011
  2. REVLIMID [Suspect]
     Dosage: 5 Milligram
     Route: 048
     Dates: start: 201202, end: 2012
  3. REVLIMID [Suspect]
     Dosage: 5 Milligram
     Route: 048
     Dates: start: 201207
  4. THALIDOMIDE [Suspect]
     Indication: MULTIPLE MYELOMA
     Route: 048
     Dates: end: 201003
  5. ZOMETA [Concomitant]
     Indication: DRUG USE FOR UNKNOWN INDICATION
     Route: 065
  6. HCTZ [Concomitant]
     Indication: HYPERTENSION
     Dosage: 25 Milligram
     Route: 048
  7. ENALAPRIL [Concomitant]
     Indication: HYPERTENSION
     Dosage: 10 Milligram
     Route: 048
  8. ENALAPRIL [Concomitant]
     Dosage: 5 Milligram
     Route: 065
  9. DIURETICS [Concomitant]
     Indication: SWELLING
     Route: 065
  10. ASPIRIN [Concomitant]
     Indication: DRUG USE FOR UNKNOWN INDICATION
     Dosage: 81 Milligram
     Route: 048
  11. ASPIRIN [Concomitant]
     Dosage: 325 Milligram
     Route: 065
  12. FERROUS SULFATE [Concomitant]
     Indication: DRUG USE FOR UNKNOWN INDICATION
     Dosage: 325 Milligram
     Route: 048
  13. MULTIVITAMINS-IRON-MINERALS-FOLIC ACID [Concomitant]
     Indication: DRUG USE FOR UNKNOWN INDICATION
     Route: 048
  14. NAPROXEN SODIUM [Concomitant]
     Indication: DRUG USE FOR UNKNOWN INDICATION
     Dosage: 220 Milligram
     Route: 048
  15. LEVAQUIN [Concomitant]
     Indication: DRUG USE FOR UNKNOWN INDICATION
     Dosage: 500 Milligram
     Route: 065
     Dates: start: 201103
  16. KEFLEX [Concomitant]
     Indication: FEVER
     Dosage: 2000 Milligram
     Route: 065
     Dates: start: 201103
  17. MOBIC [Concomitant]
     Indication: SWELLING
     Route: 065
  18. PRILOSEC [Concomitant]
     Indication: SWELLING
     Route: 065
  19. TRAMADOL [Concomitant]
     Indication: KNEE PAIN
     Route: 065
  20. PROTON PUMP INHIBITOR [Concomitant]
     Indication: ANEMIA
     Route: 065
  21. IRON [Concomitant]
     Indication: ANEMIA
     Route: 065

REACTIONS (6)
  - Ovarian cancer [Unknown]
  - Treatment noncompliance [Not Recovered/Not Resolved]
  - Erythema [Not Recovered/Not Resolved]
  - Pain in extremity [Not Recovered/Not Resolved]
  - Oedema peripheral [Not Recovered/Not Resolved]
  - Fatigue [Unknown]
